FAERS Safety Report 25439851 (Version 1)
Quarter: 2025Q2

REPORT INFORMATION
  Report Type: Spontaneous
  Country: US (occurrence: US)
  Receive Date: 20250616
  Receipt Date: 20250616
  Transmission Date: 20250716
  Serious: No
  Sender: KRAMER LABORATORIES
  Company Number: US-KRAMERLABS-2024-US-059516

PATIENT
  Age: 62 Year
  Sex: Male
  Weight: 75.75 kg

DRUGS (3)
  1. NIZORAL ANTI-DANDRUFF KETOCONAZOLE 1 ANTI-DANDRUFF [Suspect]
     Active Substance: KETOCONAZOLE
     Indication: Product used for unknown indication
     Route: 061
     Dates: start: 20241105, end: 20241105
  2. LEVOTHYROXINE [Concomitant]
     Active Substance: LEVOTHYROXINE
  3. unspecified dietary supplements [Concomitant]

REACTIONS (3)
  - Skin burning sensation [Recovered/Resolved]
  - Counterfeit product administered [Recovered/Resolved]
  - Suspected counterfeit product [Recovered/Resolved]

NARRATIVE: CASE EVENT DATE: 20241105
